FAERS Safety Report 21458272 (Version 3)
Quarter: 2023Q1

REPORT INFORMATION
  Report Type: Spontaneous
  Country: US (occurrence: US)
  Receive Date: 20221014
  Receipt Date: 20230119
  Transmission Date: 20230418
  Serious: Yes (Death, Other)
  Sender: FDA-Public Use
  Company Number: US-BRISTOL-MYERS SQUIBB COMPANY-2022-120844

PATIENT
  Age: 20 Year
  Sex: Female

DRUGS (4)
  1. YERVOY [Suspect]
     Active Substance: IPILIMUMAB
     Indication: Bone cancer
     Dosage: VIAL
     Route: 042
  2. YERVOY [Suspect]
     Active Substance: IPILIMUMAB
     Indication: Chondrosarcoma
  3. OPDIVO [Suspect]
     Active Substance: NIVOLUMAB
     Indication: Bone cancer
     Dosage: VIAL
     Route: 042
  4. OPDIVO [Suspect]
     Active Substance: NIVOLUMAB
     Indication: Chondrosarcoma

REACTIONS (2)
  - Malignant neoplasm progression [Fatal]
  - Intentional product use issue [Unknown]
